FAERS Safety Report 13579969 (Version 2)
Quarter: 2017Q3

REPORT INFORMATION
  Report Type: Report from Study
  Country: DE (occurrence: DE)
  Receive Date: 20170525
  Receipt Date: 20170818
  Transmission Date: 20171127
  Serious: Yes (Other)
  Sender: FDA-Public Use
  Company Number: DE-ROCHE-1936418

PATIENT
  Age: 72 Year
  Sex: Male
  Weight: 72.4 kg

DRUGS (7)
  1. IBRUTINIB [Suspect]
     Active Substance: IBRUTINIB
     Route: 048
     Dates: start: 20170428, end: 20170511
  2. SYMBICORT [Concomitant]
     Active Substance: BUDESONIDE\FORMOTEROL FUMARATE DIHYDRATE
     Route: 055
     Dates: start: 20170217
  3. VENETOCLAX. [Suspect]
     Active Substance: VENETOCLAX
     Indication: CHRONIC LYMPHOCYTIC LEUKAEMIA
     Dosage: CYCLE 1: 20 MG (2 TABLET. AT 10 MG ON D1-21), D22-28: 50 MG (1 TABLET. AT 50 MG), CYCLE 2: D1-7; 100
     Route: 048
     Dates: start: 20170309, end: 20170418
  4. VENETOCLAX. [Suspect]
     Active Substance: VENETOCLAX
     Route: 048
     Dates: start: 20170428, end: 20170511
  5. IBRUTINIB [Suspect]
     Active Substance: IBRUTINIB
     Indication: CHRONIC LYMPHOCYTIC LEUKAEMIA
     Dosage: CYCLES 1-12: 420 MG, D1-28, Q28D, CYCLES 13-36: 420 MG, D1-28, Q28D.?LAST DOSE PRIOR TO AE ONSET 12/
     Route: 048
     Dates: start: 20170216
  6. PARACETAMOL [Concomitant]
     Active Substance: ACETAMINOPHEN
     Route: 048
     Dates: start: 20170216, end: 20170413
  7. OBINUTUZUMAB. [Suspect]
     Active Substance: OBINUTUZUMAB
     Indication: CHRONIC LYMPHOCYTIC LEUKAEMIA
     Dosage: CYCLE 1: 100 MG, DAY1; 900 MG, D1(2); 1000 MG, D8+15, Q28D; CYCLES 2-6: 1000 MG, D1, Q28D- AS PER PR
     Route: 042
     Dates: start: 20170216, end: 20170511

REACTIONS (1)
  - Musculoskeletal pain [Recovered/Resolved]

NARRATIVE: CASE EVENT DATE: 20170412
